FAERS Safety Report 9742576 (Version 2)
Quarter: 2015Q3

REPORT INFORMATION
  Report Type: Spontaneous
  Country: US (occurrence: US)
  Receive Date: 20131210
  Receipt Date: 20150804
  Transmission Date: 20151125
  Serious: No
  Sender: FDA-Public Use
  Company Number: US-GILEAD-2009-0024513

PATIENT
  Age: 50 Year
  Sex: Male
  Weight: 116.57 kg

DRUGS (9)
  1. POTASSIUM CHLORIDE. [Concomitant]
     Active Substance: POTASSIUM CHLORIDE
  2. REMODULIN [Concomitant]
     Active Substance: TREPROSTINIL
  3. TYLENOL PM EX-STRENGTH [Concomitant]
  4. PREDNISONE. [Concomitant]
     Active Substance: PREDNISONE
  5. MULTIVITAMIN [Concomitant]
     Active Substance: VITAMINS
  6. STOOL SOFTENER [Concomitant]
     Active Substance: DOCUSATE CALCIUM
  7. FUROSEMIDE. [Concomitant]
     Active Substance: FUROSEMIDE
  8. REVATIO [Concomitant]
     Active Substance: SILDENAFIL CITRATE
  9. LETAIRIS [Suspect]
     Active Substance: AMBRISENTAN
     Indication: PULMONARY ARTERIAL HYPERTENSION
     Route: 048
     Dates: start: 20090901

REACTIONS (1)
  - Fluid retention [Unknown]
